FAERS Safety Report 12355369 (Version 2)
Quarter: 2016Q2

REPORT INFORMATION
  Report Type: Spontaneous
  Country: US (occurrence: US)
  Receive Date: 20160511
  Receipt Date: 20160620
  Transmission Date: 20160815
  Serious: Yes (Other)
  Sender: FDA-Public Use
  Company Number: US-SMITH AND NEPHEW, INC-2016SMT00382

PATIENT
  Age: 62 Year
  Sex: Female
  Weight: 90.7 kg

DRUGS (8)
  1. LEVOTHYROXINE. [Concomitant]
     Active Substance: LEVOTHYROXINE
     Dosage: 10 ?G, 3X/DAY
  2. VITAMIN B12 [Concomitant]
     Active Substance: CYANOCOBALAMIN
  3. AMBIEN [Concomitant]
     Active Substance: ZOLPIDEM TARTRATE
     Dosage: 12.5 MG, 1X/DAY
     Dates: start: 1996
  4. REGRANEX [Suspect]
     Active Substance: BECAPLERMIN
     Indication: IMPAIRED HEALING
     Dosage: UNK, 1X/DAY
     Route: 061
     Dates: start: 201601, end: 20160428
  5. FLEXERIL [Concomitant]
     Active Substance: CYCLOBENZAPRINE HYDROCHLORIDE
     Dosage: 10 MG, 3X/DAY
     Dates: start: 2004
  6. METFORMIN [Concomitant]
     Active Substance: METFORMIN HYDROCHLORIDE
     Dosage: 500 MG, 3X/DAY
     Dates: start: 2006
  7. VITAMIN D [Concomitant]
     Active Substance: CHOLECALCIFEROL
  8. PROZAC [Concomitant]
     Active Substance: FLUOXETINE HYDROCHLORIDE
     Dosage: 80 MG, 1X/DAY
     Dates: start: 1991

REACTIONS (3)
  - Drug ineffective [Recovered/Resolved with Sequelae]
  - Toe amputation [Recovered/Resolved with Sequelae]
  - Postoperative wound infection [Recovering/Resolving]

NARRATIVE: CASE EVENT DATE: 2016
